FAERS Safety Report 16218930 (Version 2)
Quarter: 2019Q2

REPORT INFORMATION
  Report Type: Spontaneous
  Country: US (occurrence: US)
  Receive Date: 20190419
  Receipt Date: 20190520
  Transmission Date: 20190711
  Serious: No
  Sender: FDA-Public Use
  Company Number: US-PFIZER INC-2019155672

PATIENT
  Age: 82 Year
  Sex: Female
  Weight: 57 kg

DRUGS (5)
  1. LYRICA [Suspect]
     Active Substance: PREGABALIN
     Indication: POST HERPETIC NEURALGIA
     Dosage: 50 MG, 3X/DAY
     Route: 048
     Dates: start: 20190206, end: 201903
  2. LIDOCAINE. [Concomitant]
     Active Substance: LIDOCAINE
     Dosage: UNK
  3. ARMOUR THYROID [Concomitant]
     Active Substance: THYROID, PORCINE
     Dosage: 15 MG, 1X/DAY
     Route: 048
  4. FLECAINIDE [Concomitant]
     Active Substance: FLECAINIDE
     Indication: ATRIAL FIBRILLATION
     Dosage: 50 MG, 2X/DAY
     Route: 048
  5. ASPERCREME [LIDOCAINE] [Concomitant]
     Dosage: UNK

REACTIONS (12)
  - Fatigue [Not Recovered/Not Resolved]
  - Depression [Unknown]
  - Diarrhoea [Not Recovered/Not Resolved]
  - Formication [Recovering/Resolving]
  - Feeling hot [Recovering/Resolving]
  - Dysgeusia [Recovered/Resolved]
  - Decreased appetite [Recovering/Resolving]
  - Drug ineffective [Unknown]
  - Insomnia [Not Recovered/Not Resolved]
  - Headache [Not Recovered/Not Resolved]
  - Weight decreased [Unknown]
  - Chills [Recovering/Resolving]

NARRATIVE: CASE EVENT DATE: 2019
